FAERS Safety Report 4527242-9 (Version None)
Quarter: 2004Q4

REPORT INFORMATION
  Report Type: 
  Country: None (occurrence: None)
  Receive Date: 20041214
  Receipt Date: 20041214
  Transmission Date: 20050328
  Serious: Yes (Hospitalization)
  Sender: FDA-Public Use
  Company Number: None

PATIENT
  Age: 50 Year
  Sex: Female
  Weight: 54.4 kg

DRUGS (26)
  1. TAXOL [Suspect]
     Indication: BREAST CANCER METASTATIC
     Dosage: 90 MG/M2 WKLY V
     Dates: start: 20040326
  2. TAXOL [Suspect]
     Indication: BREAST CANCER METASTATIC
     Dosage: 90 MG/M2 WKLY V
     Dates: start: 20040402
  3. TAXOL [Suspect]
     Indication: BREAST CANCER METASTATIC
     Dosage: 90 MG/M2 WKLY V
     Dates: start: 20040409
  4. TAXOL [Suspect]
     Indication: BREAST CANCER METASTATIC
     Dosage: 90 MG/M2 WKLY V
     Dates: start: 20040423
  5. TAXOL [Suspect]
     Indication: BREAST CANCER METASTATIC
     Dosage: 90 MG/M2 WKLY V
     Dates: start: 20040430
  6. TAXOL [Suspect]
     Indication: BREAST CANCER METASTATIC
     Dosage: 90 MG/M2 WKLY V
     Dates: start: 20040507
  7. TAXOL [Suspect]
     Indication: BREAST CANCER METASTATIC
     Dosage: 90 MG/M2 WKLY V
     Dates: start: 20040521
  8. TAXOL [Suspect]
     Indication: BREAST CANCER METASTATIC
     Dosage: 90 MG/M2 WKLY V
     Dates: start: 20040528
  9. TAXOL [Suspect]
     Indication: BREAST CANCER METASTATIC
     Dosage: 90 MG/M2 WKLY V
     Dates: start: 20040604
  10. TAXOL [Suspect]
     Indication: BREAST CANCER METASTATIC
     Dosage: 90 MG/M2 WKLY V
     Dates: start: 20040617
  11. TAXOL [Suspect]
     Indication: BREAST CANCER METASTATIC
     Dosage: 90 MG/M2 WKLY V
     Dates: start: 20040623
  12. TAXOL [Suspect]
     Indication: BREAST CANCER METASTATIC
     Dosage: 90 MG/M2 WKLY V
     Dates: start: 20040702
  13. TAXOL [Suspect]
     Indication: BREAST CANCER METASTATIC
     Dosage: 90 MG/M2 WKLY V
     Dates: start: 20040716
  14. TAXOL [Suspect]
     Indication: BREAST CANCER METASTATIC
     Dosage: 90 MG/M2 WKLY V
     Dates: start: 20040723
  15. TAXOL [Suspect]
     Indication: BREAST CANCER METASTATIC
     Dosage: 90 MG/M2 WKLY V
     Dates: start: 20040730
  16. TAXOL [Suspect]
     Indication: BREAST CANCER METASTATIC
     Dosage: 90 MG/M2 WKLY V
     Dates: start: 20040813
  17. TAXOL [Suspect]
     Indication: BREAST CANCER METASTATIC
     Dosage: 90 MG/M2 WKLY V
     Dates: start: 20040820
  18. TAXOL [Suspect]
     Indication: BREAST CANCER METASTATIC
     Dosage: 90 MG/M2 WKLY V
     Dates: start: 20040827
  19. TAXOL [Suspect]
     Indication: BREAST CANCER METASTATIC
     Dosage: 90 MG/M2 WKLY V
     Dates: start: 20040910
  20. TAXOL [Suspect]
     Indication: BREAST CANCER METASTATIC
     Dosage: 90 MG/M2 WKLY V
     Dates: start: 20040917
  21. TAXOL [Suspect]
     Indication: BREAST CANCER METASTATIC
     Dosage: 90 MG/M2 WKLY V
     Dates: start: 20040924
  22. TAXOL [Suspect]
     Indication: BREAST CANCER METASTATIC
     Dosage: 90 MG/M2 WKLY V
     Dates: start: 20041008
  23. TAXOL [Suspect]
     Indication: BREAST CANCER METASTATIC
     Dosage: 90 MG/M2 WKLY V
     Dates: start: 20041015
  24. TAXOL [Suspect]
     Indication: BREAST CANCER METASTATIC
     Dosage: 90 MG/M2 WKLY V
     Dates: start: 20041022
  25. TAXOL [Suspect]
     Indication: BREAST CANCER METASTATIC
     Dosage: 90 MG/M2 WKLY V
     Dates: start: 20041105
  26. TAXOL [Suspect]
     Indication: BREAST CANCER METASTATIC
     Dosage: 90 MG/M2 WKLY V
     Dates: start: 20041112

REACTIONS (4)
  - HEAD INJURY [None]
  - INFUSION RELATED REACTION [None]
  - LOSS OF CONSCIOUSNESS [None]
  - PATHOLOGICAL FRACTURE [None]
